FAERS Safety Report 8495584 (Version 3)
Quarter: 2012Q4

REPORT INFORMATION
  Report Type: 
  Country: JP (occurrence: JP)
  Receive Date: 20120405
  Receipt Date: 20121228
  Transmission Date: 20130627
  Serious: Yes (Death, Other)
  Sender: FDA-Public Use
  Company Number: JP-PFIZER INC-2012083000

PATIENT
  Age: 67 Year
  Sex: Male
  Weight: 48 kg

DRUGS (21)
  1. CAMPTO [Suspect]
     Indication: GASTRIC CANCER
     Dosage: 219 mg, once a day
     Route: 041
     Dates: start: 20120223, end: 20120223
  2. CAMPTO [Suspect]
     Dosage: 219 mg, once a day
     Route: 041
     Dates: start: 20120308, end: 20120308
  3. TS-1 [Suspect]
     Indication: GASTRIC CANCER
     Dosage: 40 mg, 2x/day
     Route: 048
     Dates: start: 20110627, end: 20120209
  4. TRAMAL [Concomitant]
     Dosage: UNK
     Dates: start: 20120222, end: 20120321
  5. MEYLON [Concomitant]
     Dosage: UNK
     Dates: start: 20120322, end: 20120323
  6. RECOMODULIN [Concomitant]
     Dosage: UNK
     Dates: start: 20120322, end: 20120323
  7. INOVAN [Concomitant]
     Dosage: UNK
     Dates: start: 20120322, end: 20120323
  8. VOLTAREN [Concomitant]
     Dosage: UNK
     Dates: start: 20120223, end: 20120223
  9. LOXOPROFEN [Concomitant]
     Dosage: UNK
     Dates: start: 20120222, end: 20120321
  10. MUCOSTA [Concomitant]
     Dosage: UNK
     Dates: start: 20120222, end: 20120321
  11. FERO-GRADUMET [Concomitant]
  12. DEPAS [Concomitant]
     Dosage: UNK
     Dates: start: 20120222, end: 20120320
  13. MAG-LAX [Concomitant]
     Dosage: UNK
     Dates: start: 20120222, end: 20120320
  14. DECADRON [Concomitant]
     Dosage: UNK
     Dates: start: 20120224, end: 20120311
  15. SENNOSIDE [Concomitant]
     Dosage: UNK
     Dates: start: 20120301
  16. ENSURE [Concomitant]
     Dosage: UNK
     Dates: start: 20120308, end: 20120320
  17. PRIMPERAN [Concomitant]
     Dosage: UNK
     Dates: start: 20120308, end: 20120321
  18. NU LOTAN [Concomitant]
  19. SPIRIVA [Concomitant]
  20. ELENTAL [Concomitant]
     Dosage: Powder
  21. NIVADIL [Concomitant]

REACTIONS (6)
  - Acidosis [Fatal]
  - Hyperkalaemia [Fatal]
  - Blood creatinine increased [Fatal]
  - Nausea [Not Recovered/Not Resolved]
  - Decreased appetite [Not Recovered/Not Resolved]
  - Malaise [Not Recovered/Not Resolved]
